FAERS Safety Report 7446994-1 (Version None)
Quarter: 2011Q2

REPORT INFORMATION
  Report Type: 
  Country: None (occurrence: None)
  Receive Date: 20110429
  Receipt Date: 20110427
  Transmission Date: 20111010
  Serious: Yes (Death)
  Sender: FDA-Public Use
  Company Number: PHHY2011US33478

PATIENT
  Sex: Male

DRUGS (7)
  1. GLEEVEC [Suspect]
     Dosage: 800 MG, UNK
     Route: 048
     Dates: start: 20110112
  2. ZANTAC [Concomitant]
     Indication: GASTROOESOPHAGEAL REFLUX DISEASE
     Dosage: 150 MG, BID
     Route: 048
     Dates: start: 20090807
  3. HYDROCODONE BITARTRATE [Concomitant]
     Indication: PAIN IN EXTREMITY
     Dosage: 500 MG, PRN
     Route: 048
     Dates: start: 20110308
  4. ATENOLOL [Concomitant]
     Indication: HYPERTENSION
  5. IBUPROFEN [Concomitant]
     Indication: PAIN IN EXTREMITY
     Dosage: 600 MG, PRN
     Route: 048
     Dates: start: 20110303
  6. GLEEVEC [Suspect]
     Indication: CHRONIC MYELOID LEUKAEMIA
     Dosage: 400 MG, UNK
     Route: 048
  7. GLEEVEC [Suspect]
     Dosage: 400 MG, BID
     Route: 048
     Dates: start: 20101111

REACTIONS (1)
  - CARDIAC DISORDER [None]
